FAERS Safety Report 6234038-9 (Version None)
Quarter: 2009Q2

REPORT INFORMATION
  Report Type: 
  Country: None (occurrence: None)
  Receive Date: 20090612
  Receipt Date: 20090604
  Transmission Date: 20091009
  Serious: Yes (Other)
  Sender: FDA-Public Use
  Company Number: CHNY2009NL02299

PATIENT
  Age: 58 Year
  Sex: Male

DRUGS (2)
  1. HYOSCINE HBR HYT [Suspect]
     Indication: MOTION SICKNESS
     Dosage: 1 DF, QD, TRANSDERMAL
     Route: 062
     Dates: start: 20090429, end: 20090430
  2. ZOPICLONE (ZOPICLONE) [Suspect]
     Dosage: 1 DF OR HALF A DF
     Dates: start: 20090429

REACTIONS (9)
  - ABNORMAL BEHAVIOUR [None]
  - AGGRESSION [None]
  - AMNESIA [None]
  - CONFUSIONAL STATE [None]
  - DISORIENTATION [None]
  - DRUG TOXICITY [None]
  - HALLUCINATION [None]
  - OVERDOSE [None]
  - SPEECH DISORDER [None]
